FAERS Safety Report 18150846 (Version 1)
Quarter: 2020Q3

REPORT INFORMATION
  Report Type: Spontaneous
  Country: US (occurrence: US)
  Receive Date: 20200814
  Receipt Date: 20200814
  Transmission Date: 20201103
  Serious: Yes (Hospitalization)
  Sender: FDA-Public Use
  Company Number: None

PATIENT
  Sex: Male

DRUGS (1)
  1. SILDENAFIL. [Suspect]
     Active Substance: SILDENAFIL
     Indication: CHRONIC RESPIRATORY FAILURE
     Dosage: ?          OTHER FREQUENCY:EVERY 8 HOURS;OTHER ROUTE:JEJUNOSTOMY TUBE?

REACTIONS (1)
  - Oxygen saturation decreased [None]
